FAERS Safety Report 10253247 (Version 1)
Quarter: 2014Q2

REPORT INFORMATION
  Report Type: Spontaneous
  Country: US (occurrence: None)
  Receive Date: 20140619
  Receipt Date: 20140619
  Transmission Date: 20141212
  Serious: Yes (Other)
  Sender: FDA-Public Use
  Company Number: None

PATIENT
  Age: 48 Year
  Sex: Female
  Weight: 72.58 kg

DRUGS (2)
  1. BACTRIM 800-160MG AMNEAL PHA [Suspect]
     Indication: ARTHROPOD BITE
     Dosage: 1 TABLET, TWICE DAILY, TAKEN BY MOUTH
     Route: 048
     Dates: start: 20140605, end: 20140611
  2. BACTRIM 800-160MG AMNEAL PHA [Suspect]
     Indication: INFECTION
     Dosage: 1 TABLET, TWICE DAILY, TAKEN BY MOUTH
     Route: 048
     Dates: start: 20140605, end: 20140611

REACTIONS (3)
  - Pyrexia [None]
  - Headache [None]
  - Stevens-Johnson syndrome [None]
